FAERS Safety Report 8132367-5 (Version None)
Quarter: 2012Q1

REPORT INFORMATION
  Report Type: 
  Country: None (occurrence: None)
  Receive Date: 20120213
  Receipt Date: 20120201
  Transmission Date: 20120608
  Serious: Yes (Other)
  Sender: FDA-Public Use
  Company Number: US-ELI_LILLY_AND_COMPANY-US201112000512

PATIENT
  Sex: Female
  Weight: 53.061 kg

DRUGS (2)
  1. FORTEO [Suspect]
     Indication: OSTEOPOROSIS
     Dosage: 20 UG, QD
     Dates: start: 20110126
  2. FORTEO [Suspect]
     Dosage: 20 UG, QD

REACTIONS (9)
  - MALAISE [None]
  - PAIN [None]
  - DIARRHOEA [None]
  - WEIGHT DECREASED [None]
  - DIVERTICULUM [None]
  - NAUSEA [None]
  - DYSPHAGIA [None]
  - GASTROINTESTINAL DISORDER [None]
  - RENAL MASS [None]
